FAERS Safety Report 6168872-0 (Version None)
Quarter: 2009Q2

REPORT INFORMATION
  Report Type: 
  Country: None (occurrence: None)
  Receive Date: 20090427
  Receipt Date: 20090415
  Transmission Date: 20091009
  Serious: Yes (Hospitalization)
  Sender: FDA-Public Use
  Company Number: US-PFIZER INC-2009199671

PATIENT
  Age: 76 Year
  Sex: Female

DRUGS (11)
  1. VERAPAMIL HCL [Suspect]
     Indication: INFECTION
     Dosage: 180 MG, UNK
  2. TELITHROMYCIN [Interacting]
     Indication: SINUSITIS
     Dosage: 800 MG, UNK
  3. ESOMEPRAZOLE [Concomitant]
     Dosage: 40 MG, UNK
  4. TELMISARTAN [Concomitant]
     Dosage: 80 MG, UNK
  5. FUROSEMIDE [Concomitant]
     Dosage: 40 MG, UNK
  6. MONTELUKAST [Concomitant]
     Dosage: 10 MG, UNK
  7. COLESEVELAM [Concomitant]
     Dosage: 1875 MG, UNK
  8. OXAPROZIN [Concomitant]
     Dosage: 600 MG, UNK
  9. FLUTICASONE [Concomitant]
     Dosage: 0.05 %, UNK
  10. ALBUTEROL SULFATE/IPRATROPIUM BROMIDE [Concomitant]
     Dosage: UNK
  11. BUDESONIDE [Concomitant]
     Dosage: 200 UG, UNK

REACTIONS (5)
  - ASTHENIA [None]
  - BRADYCARDIA [None]
  - DRUG INTERACTION [None]
  - DYSPNOEA [None]
  - HYPOTENSION [None]
